FAERS Safety Report 9657790 (Version 2)
Quarter: 2013Q4

REPORT INFORMATION
  Report Type: Spontaneous
  Country: IN (occurrence: IN)
  Receive Date: 20131030
  Receipt Date: 20131030
  Transmission Date: 20140711
  Serious: Yes (Hospitalization)
  Sender: FDA-Public Use
  Company Number: IN-SA-THYM-1003973

PATIENT
  Age: 40 Year
  Sex: Female
  Weight: 40 kg

DRUGS (5)
  1. THYMOGLOBULIN [Suspect]
     Indication: BONE MARROW CONDITIONING REGIMEN
     Route: 065
     Dates: start: 20120822, end: 20120822
  2. THYMOGLOBULIN [Suspect]
     Indication: BONE MARROW CONDITIONING REGIMEN
     Route: 065
     Dates: start: 20120825, end: 20120825
  3. THYMOGLOBULIN [Suspect]
     Indication: BONE MARROW CONDITIONING REGIMEN
     Route: 065
     Dates: start: 20120827, end: 20120827
  4. CELLCEPT [Concomitant]
     Dosage: 2 TAB BID
     Dates: start: 20120822
  5. VINGRAF [Concomitant]
     Dates: start: 20120822

REACTIONS (2)
  - Transplant rejection [Recovered/Resolved with Sequelae]
  - Blood creatinine increased [Recovered/Resolved with Sequelae]
